FAERS Safety Report 7259399-3 (Version None)
Quarter: 2011Q1

REPORT INFORMATION
  Report Type: 
  Country: None (occurrence: None)
  Receive Date: 20110129
  Receipt Date: 20100819
  Transmission Date: 20110831
  Serious: No
  Sender: FDA-Public Use
  Company Number: US-ABBOTT-10P-163-0666239-00

PATIENT
  Sex: Female
  Weight: 69.916 kg

DRUGS (5)
  1. HUMIRA [Suspect]
     Indication: RHEUMATOID ARTHRITIS
     Dates: start: 20100301
  2. NAPROXEN [Concomitant]
     Indication: PRODUCT USED FOR UNKNOWN INDICATION
  3. MEDROL [Concomitant]
     Indication: PRODUCT USED FOR UNKNOWN INDICATION
  4. CORTISONE CREAME [Concomitant]
     Indication: PRODUCT USED FOR UNKNOWN INDICATION
  5. NEORAL [Concomitant]
     Indication: PSORIASIS

REACTIONS (1)
  - PSORIASIS [None]
